FAERS Safety Report 14684211 (Version 8)
Quarter: 2018Q4

REPORT INFORMATION
  Report Type: Spontaneous
  Country: JP (occurrence: JP)
  Receive Date: 20180327
  Receipt Date: 20181017
  Transmission Date: 20190204
  Serious: Yes (Other)
  Sender: FDA-Public Use
  Company Number: JP-ROCHE-2093378

PATIENT
  Age: 23 Year
  Sex: Male
  Weight: 102 kg

DRUGS (10)
  1. HOKUNALIN [Concomitant]
     Active Substance: TULOBUTEROL
     Indication: PRODUCT USED FOR UNKNOWN INDICATION
     Route: 065
     Dates: start: 20180311
  2. MUCOSOLVAN L [Concomitant]
     Active Substance: AMBROXOL HYDROCHLORIDE
     Indication: PRODUCT USED FOR UNKNOWN INDICATION
     Route: 048
     Dates: start: 20180311
  3. XOLAIR [Suspect]
     Active Substance: OMALIZUMAB
     Indication: ASTHMA
     Route: 058
     Dates: start: 20180313, end: 20180313
  4. GLYCYRON (AMMONIUM GLYCYRRHIZATE) [Concomitant]
     Route: 048
     Dates: start: 20180316
  5. SOLU-CORTEF [Concomitant]
     Active Substance: HYDROCORTISONE SODIUM SUCCINATE
     Indication: ASTHMA
     Route: 065
     Dates: start: 20180301
  6. MUCOSOLVAN L [Concomitant]
     Active Substance: AMBROXOL HYDROCHLORIDE
     Route: 048
     Dates: start: 20180316
  7. ONON [Concomitant]
     Active Substance: PRANLUKAST
     Route: 065
     Dates: start: 20180316
  8. HOKUNALIN [Concomitant]
     Active Substance: TULOBUTEROL
     Route: 065
     Dates: start: 20180316
  9. ONON [Concomitant]
     Active Substance: PRANLUKAST
     Indication: PRODUCT USED FOR UNKNOWN INDICATION
     Route: 065
     Dates: start: 20180311
  10. GLYCYRON (AMMONIUM GLYCYRRHIZATE) [Concomitant]
     Indication: PRODUCT USED FOR UNKNOWN INDICATION
     Route: 048
     Dates: start: 20180311

REACTIONS (6)
  - Gait inability [Unknown]
  - Myasthenia gravis [Recovered/Resolved]
  - Concomitant disease aggravated [Not Recovered/Not Resolved]
  - Eyelid ptosis [Recovering/Resolving]
  - Concomitant disease aggravated [Recovered/Resolved]
  - Myasthenia gravis [Not Recovered/Not Resolved]

NARRATIVE: CASE EVENT DATE: 20180313
